FAERS Safety Report 4447209-9 (Version None)
Quarter: 2004Q3

REPORT INFORMATION
  Report Type: 
  Country: None (occurrence: None)
  Receive Date: 20040908
  Receipt Date: 20040908
  Transmission Date: 20050211
  Serious: No
  Sender: FDA-Public Use
  Company Number: None

PATIENT
  Age: 51 Year
  Sex: Male
  Weight: 85.3 kg

DRUGS (8)
  1. PEGINTERFERON [Suspect]
     Indication: HEPATITIS C
     Dosage: 180 MCG EVERY WEAK SQ
     Route: 058
     Dates: start: 20040412, end: 20040712
  2. IBUPROFEN [Concomitant]
  3. CYCLOBENZAPRINE HCL [Concomitant]
  4. DOXAZOSIN MESYLATE [Concomitant]
  5. INSULIN NOVOLIN (NPH/REG) [Concomitant]
  6. RIBAVIRIN [Concomitant]
  7. SILDENAFIL CITRATE [Concomitant]
  8. QUETIAPINE FUMARATE [Concomitant]

REACTIONS (1)
  - THROMBOCYTOPENIA [None]
